FAERS Safety Report 5376687-6 (Version None)
Quarter: 2007Q2

REPORT INFORMATION
  Report Type: 
  Country: None (occurrence: None)
  Receive Date: 20070629
  Receipt Date: 20070613
  Transmission Date: 20071010
  Serious: Yes (Hospitalization)
  Sender: FDA-Public Use
  Company Number: 2007S1005332

PATIENT
  Age: 70 Year
  Sex: Female

DRUGS (3)
  1. BISOPROLOL FUMARATE [Suspect]
     Indication: HYPERTENSION
     Dosage: 5 MG
  2. HYDROCHLOROTHIAZIDE [Suspect]
     Indication: HYPERTENSION
  3. ACETYLSALICYLIC ACID (CON.) [Concomitant]

REACTIONS (15)
  - ABDOMINAL PAIN [None]
  - AGITATION [None]
  - BACK PAIN [None]
  - BLOOD CREATININE INCREASED [None]
  - CARDIAC OUTPUT DECREASED [None]
  - CONFUSIONAL STATE [None]
  - CYANOSIS [None]
  - FAECAL INCONTINENCE [None]
  - NAUSEA [None]
  - PULMONARY OEDEMA [None]
  - SHOCK [None]
  - TYPE I HYPERSENSITIVITY [None]
  - URINARY INCONTINENCE [None]
  - VASCULAR RESISTANCE SYSTEMIC INCREASED [None]
  - VOMITING [None]
